FAERS Safety Report 8454764-0 (Version None)
Quarter: 2012Q2

REPORT INFORMATION
  Report Type: 
  Country: None (occurrence: None)
  Receive Date: 20120615
  Receipt Date: 20120615
  Transmission Date: 20120825
  Serious: Yes (Life-Threatening, Hospitalization)
  Sender: FDA-Public Use
  Company Number: None

PATIENT
  Sex: Female
  Weight: 99.7913 kg

DRUGS (2)
  1. PREDNISONE [Suspect]
     Indication: PULMONARY OEDEMA
     Dosage: 10 MG 1 TABLET DAILY MOUTH
     Route: 048
     Dates: start: 20120411
  2. PREDNISONE [Suspect]
     Dosage: 20MG 3 TABLETS FOR 3 DAYS/2 TABLET FOR 3 DAYS 1 TABLET EVERY DAY DAILY MOUTH
     Route: 048
     Dates: start: 20120507

REACTIONS (1)
  - SKIN ATROPHY [None]
